FAERS Safety Report 6288127-3 (Version None)
Quarter: 2009Q3

REPORT INFORMATION
  Report Type: 
  Country: None (occurrence: None)
  Receive Date: 20090729
  Receipt Date: 20090420
  Transmission Date: 20100115
  Serious: No
  Sender: FDA-Public Use
  Company Number: A0780862A

PATIENT
  Age: 65 Year
  Sex: Female
  Weight: 67.3 kg

DRUGS (2)
  1. ZANTAC [Suspect]
     Dosage: 150MG AS REQUIRED
  2. MYLANTA [Suspect]
     Route: 048
     Dates: start: 20090402

REACTIONS (2)
  - FAECES DISCOLOURED [None]
  - PAIN [None]
